FAERS Safety Report 18556774 (Version 1)
Quarter: 2020Q4

REPORT INFORMATION
  Report Type: Spontaneous
  Country: BR (occurrence: BR)
  Receive Date: 20201128
  Receipt Date: 20201128
  Transmission Date: 20210114
  Serious: Yes (Hospitalization, Other)
  Sender: FDA-Public Use
  Company Number: PHHY2017BR015541

PATIENT
  Sex: Male
  Weight: 78 kg

DRUGS (3)
  1. FORASEQ [Suspect]
     Active Substance: BUDESONIDE\FORMOTEROL FUMARATE
     Dosage: UNK (STARTED 10-15 YEARS AGO)(1 CAPSULE EACH TREATMENT BY INHALATION
     Route: 055
  2. FORASEQ [Suspect]
     Active Substance: BUDESONIDE\FORMOTEROL FUMARATE
     Indication: DYSPNOEA
     Dosage: UNK UNK, BID (60+60 CAPSULES)
     Route: 055
  3. AAS [Concomitant]
     Active Substance: ASPIRIN
     Indication: PRODUCT USED FOR UNKNOWN INDICATION
     Dosage: UNK
     Route: 065

REACTIONS (4)
  - Infarction [Recovered/Resolved]
  - Diabetes mellitus [Not Recovered/Not Resolved]
  - Dyspnoea [Recovering/Resolving]
  - Product physical issue [Unknown]
